FAERS Safety Report 9247543 (Version 1)
Quarter: 2013Q2

REPORT INFORMATION
  Report Type: Report from Study
  Country: US (occurrence: US)
  Receive Date: 20130423
  Receipt Date: 20130423
  Transmission Date: 20140414
  Serious: Yes (Death, Other)
  Sender: FDA-Public Use
  Company Number: PHEH2013US008684

PATIENT
  Age: 91 Year
  Sex: Female

DRUGS (19)
  1. ZOMETA [Suspect]
     Dosage: 4/5 MG/ML
     Route: 042
  2. NORMAL SALINE [Concomitant]
     Dosage: 200CC/HR
  3. ACETAMINOPHEN [Concomitant]
     Dosage: 325 MG
     Route: 048
  4. ASPIRIN [Concomitant]
     Dosage: 81 MG, QD
     Route: 048
  5. BISACODYL [Concomitant]
     Dosage: 10 MG, UNK
  6. COLACE [Concomitant]
     Dosage: 100 MG, TID
     Route: 048
  7. DIOVAN HCT [Concomitant]
     Dosage: 0.5 DF(320/25MG), DAILY
     Route: 048
  8. MILK OF MAGNESIA [Concomitant]
     Dosage: 30 ML, QD
     Route: 048
  9. OMEPRAZOLE [Concomitant]
     Dosage: 20 MG, BID
     Route: 048
  10. OXYBUTYNIN CHLORIDE [Concomitant]
     Dosage: 10 MG, QD
     Route: 048
  11. PRAVASTATIN [Concomitant]
  12. SEROQUEL [Concomitant]
     Dosage: 25 MG, BID
     Route: 048
  13. DILTIAZEM (TAZTLA XT) [Concomitant]
     Dosage: 300 MG, BID
     Route: 048
  14. VITAMIN D3 [Concomitant]
     Dosage: 1000 DF, QD
  15. XANAX [Concomitant]
     Dosage: 0.25 MG, PRN (AT BEDTIME)
     Route: 048
  16. ACIDOPHILUS [Concomitant]
     Dosage: 1 DF(1 PACKET), QID
     Route: 048
  17. DUONEB [Concomitant]
     Dosage: UNK DF, PRN
  18. PROTONIX [Concomitant]
     Dosage: 40 MG, BID
     Route: 048
  19. ZOFRAN [Concomitant]
     Dosage: 4 MG, Q6H
     Route: 048

REACTIONS (14)
  - Death [Fatal]
  - Weight decreased [Unknown]
  - Haematemesis [Unknown]
  - Dementia [Unknown]
  - Hiatus hernia [Unknown]
  - Dysphagia [Unknown]
  - Oesophageal stenosis [Unknown]
  - Gastrooesophageal reflux disease [Unknown]
  - Proctitis [Unknown]
  - Diverticulum [Unknown]
  - Haemorrhoids [Unknown]
  - Renal cyst [Unknown]
  - Decreased appetite [Unknown]
  - Hypotension [Unknown]
